FAERS Safety Report 11466234 (Version 1)
Quarter: 2015Q3

REPORT INFORMATION
  Report Type: Spontaneous
  Country: US (occurrence: US)
  Receive Date: 20150907
  Receipt Date: 20150907
  Transmission Date: 20151125
  Serious: Yes (Other)
  Sender: FDA-Public Use
  Company Number: US-TAKEDA-2014TUS011695

PATIENT

DRUGS (8)
  1. GLUCOPHAGE [Concomitant]
     Active Substance: METFORMIN HYDROCHLORIDE
     Dosage: 850-1000 MG, UNK
     Dates: start: 2001
  2. LANTUS [Concomitant]
     Active Substance: INSULIN GLARGINE
     Dosage: 100 U/ML, UNK
     Dates: start: 2010, end: 2013
  3. GLUCOTROL [Concomitant]
     Active Substance: GLIPIZIDE
     Dosage: 5-20 MG, UNK
     Dates: start: 1994, end: 1996
  4. ACTOS [Suspect]
     Active Substance: PIOGLITAZONE HYDROCHLORIDE
     Indication: TYPE 2 DIABETES MELLITUS
     Dosage: 30 MG, UNK
     Route: 048
     Dates: start: 2008, end: 2010
  5. GLUCOPHAGE [Concomitant]
     Active Substance: METFORMIN HYDROCHLORIDE
     Dosage: 850-1000 MG,UNK
     Dates: start: 2013
  6. NOVOLOG [Concomitant]
     Active Substance: INSULIN ASPART
     Indication: DIABETES MELLITUS
     Dosage: 100/ML, UNK
     Dates: start: 2012
  7. GLUCOTROL [Concomitant]
     Active Substance: GLIPIZIDE
     Dosage: 5-20 MG, UNK
     Dates: start: 2001, end: 2008
  8. METFORMIN [Concomitant]
     Active Substance: METFORMIN HYDROCHLORIDE
     Dosage: 500-1000 MG, UNK
     Dates: start: 2001, end: 2013

REACTIONS (1)
  - Bladder cancer [Unknown]

NARRATIVE: CASE EVENT DATE: 201212
